FAERS Safety Report 7491724-0 (Version None)
Quarter: 2011Q2

REPORT INFORMATION
  Report Type: 
  Country: None (occurrence: None)
  Receive Date: 20110519
  Receipt Date: 20110413
  Transmission Date: 20111010
  Serious: Yes (Life-Threatening)
  Sender: FDA-Public Use
  Company Number: JP-BAYER-200810285BYL

PATIENT
  Age: 48 Year
  Sex: Female
  Weight: 50 kg

DRUGS (13)
  1. UNASYN [Suspect]
     Indication: PNEUMONIA MYCOPLASMAL
     Dosage: 6 G (DAILY DOSE), QID, IV DRIP
     Route: 041
     Dates: start: 20061017, end: 20061020
  2. CANDESARTAN CILEXETIL [Suspect]
     Indication: HYPERTENSION
     Route: 048
     Dates: start: 20061028, end: 20061110
  3. CIPROFLAXACIN [Suspect]
     Indication: PNEUMONIA MYCOPLASMAL
     Route: 041
     Dates: start: 20061020, end: 20061030
  4. ASPIRIN [Suspect]
     Route: 048
     Dates: start: 20061001, end: 20061101
  5. SULFAMETHOXAZOLE [Suspect]
     Indication: PNEUMONIA MYCOPLASMAL
     Route: 048
     Dates: start: 20061030, end: 20061110
  6. I.V. SOLUTIONS [Concomitant]
     Indication: PNEUMONIA
     Route: 041
  7. METHYLPREDNISOLONE [Concomitant]
     Indication: PNEUMONIA
     Dosage: DAILY DOSE 1 G
     Route: 065
  8. ROCEPHIN [Suspect]
     Indication: PNEUMONIA MYCOPLASMAL
     Route: 041
     Dates: start: 20061020, end: 20061030
  9. OTHER ANALGESICS AND ANTIPYRETICS [Concomitant]
     Indication: PNEUMONIA MYCOPLASMAL
  10. CANDESARTAN CILEXETIL [Suspect]
  11. METHYLPREDNISOLONE [Concomitant]
     Dosage: 80 MG, QD
  12. AZITHROMYCIN [Concomitant]
     Indication: PNEUMONIA MYCOPLASMAL
     Dosage: UNK
     Route: 065
  13. ANTIINFLAMMATORY/ANTIRHEUMATIC PRODUCTS [Concomitant]
     Indication: PNEUMONIA MYCOPLASMAL

REACTIONS (7)
  - ERYTHEMA [None]
  - SKIN PLAQUE [None]
  - RASH MACULAR [None]
  - PYREXIA [None]
  - TOXIC EPIDERMAL NECROLYSIS [None]
  - SKIN LESION [None]
  - DERMATITIS BULLOUS [None]
